FAERS Safety Report 24164610 (Version 2)
Quarter: 2024Q3

REPORT INFORMATION
  Report Type: Spontaneous
  Country: JP (occurrence: JP)
  Receive Date: 20240801
  Receipt Date: 20240807
  Transmission Date: 20241017
  Serious: Yes (Hospitalization, Other)
  Sender: ANI
  Company Number: JP-ANIPHARMA-2024-JP-000205

PATIENT
  Age: 89 Year
  Sex: Male

DRUGS (1)
  1. CASODEX [Suspect]
     Active Substance: BICALUTAMIDE
     Indication: Prostate cancer
     Dosage: 80 MG QD
     Route: 048
     Dates: start: 2015, end: 20240731

REACTIONS (3)
  - Platelet count decreased [Unknown]
  - Duodenal polyp [Unknown]
  - Condition aggravated [Unknown]
